FAERS Safety Report 8336596-7 (Version None)
Quarter: 2012Q2

REPORT INFORMATION
  Report Type: 
  Country: None (occurrence: None)
  Receive Date: 20120501
  Receipt Date: 20120417
  Transmission Date: 20120825
  Serious: Yes (Life-Threatening, Hospitalization, Other)
  Sender: FDA-Public Use
  Company Number: AUR-APL-2012 - 01980

PATIENT
  Age: 36 Year
  Sex: Female

DRUGS (10)
  1. SERTRALINE HYDROCHLORIDE [Suspect]
     Indication: MENTAL DISORDER
     Dosage: UNKNOWN
  2. LITHIUM CARBONATE [Suspect]
     Indication: MENTAL DISORDER
     Dosage: UNKNOWN
  3. TRAZODONE HCL [Suspect]
     Indication: MENTAL DISORDER
     Dosage: UNKNOWN
  4. BUPROPION HCL [Suspect]
     Indication: MENTAL DISORDER
     Dosage: UNKNOWN
  5. ACETAMINOPHEN [Suspect]
     Indication: URINARY TRACT INFECTION
     Dosage: UNKNOWN
  6. LAMOTRIGINE [Suspect]
     Indication: MENTAL DISORDER
     Dosage: UNKNOWN
  7. ONDANSETRON [Concomitant]
  8. LOXAPINE [Suspect]
     Indication: MENTAL DISORDER
     Dosage: UNKNOWN
  9. VENLAFAXINE [Suspect]
     Indication: MENTAL DISORDER
     Dosage: UNKNOWN
  10. CIPROFLOXACIN [Concomitant]

REACTIONS (9)
  - VOMITING [None]
  - ALANINE AMINOTRANSFERASE INCREASED [None]
  - NEUROLEPTIC MALIGNANT SYNDROME [None]
  - MENTAL STATUS CHANGES [None]
  - NAUSEA [None]
  - ASPARTATE AMINOTRANSFERASE INCREASED [None]
  - DIARRHOEA [None]
  - HEADACHE [None]
  - URINARY TRACT INFECTION [None]
